FAERS Safety Report 8449678-6 (Version None)
Quarter: 2012Q2

REPORT INFORMATION
  Report Type: 
  Country: None (occurrence: None)
  Receive Date: 20120620
  Receipt Date: 20120618
  Transmission Date: 20120825
  Serious: No
  Sender: FDA-Public Use
  Company Number: US-PFIZER INC-2012147178

PATIENT
  Sex: Female
  Weight: 99 kg

DRUGS (1)
  1. GABAPENTIN [Suspect]
     Indication: BACK DISORDER
     Dosage: 300 MG, 3X/DAY
     Dates: start: 20120517, end: 20120616

REACTIONS (1)
  - OEDEMA PERIPHERAL [None]
